FAERS Safety Report 17895116 (Version 1)
Quarter: 2020Q2

REPORT INFORMATION
  Report Type: Spontaneous
  Country: US (occurrence: US)
  Receive Date: 20200614
  Receipt Date: 20200614
  Transmission Date: 20200714
  Serious: No
  Sender: FDA-Public Use
  Company Number: None

PATIENT
  Age: 61 Year
  Sex: Female
  Weight: 99.45 kg

DRUGS (11)
  1. KRILL OIL [Concomitant]
     Active Substance: DIETARY SUPPLEMENT\KRILL OIL
  2. ZOLPIDEM [Suspect]
     Active Substance: ZOLPIDEM TARTRATE
     Indication: INSOMNIA
     Dosage: ?          QUANTITY:1 TABLET(S);?
     Route: 048
     Dates: start: 20200505, end: 20200604
  3. BUPROPION. [Concomitant]
     Active Substance: BUPROPION
  4. METOPROLOL. [Concomitant]
     Active Substance: METOPROLOL
  5. LEVOTHYROXINE. [Concomitant]
     Active Substance: LEVOTHYROXINE
  6. LOW DOSE ASPIRIN [Concomitant]
     Active Substance: ASPIRIN
  7. VITA MELTS FAST DISSOLVE SLEEP [Concomitant]
  8. SINGULAIR [Concomitant]
     Active Substance: MONTELUKAST SODIUM
  9. ZOLPIDEM [Concomitant]
     Active Substance: ZOLPIDEM TARTRATE
  10. VITAMIN E [Concomitant]
     Active Substance: .ALPHA.-TOCOPHEROL
  11. HAIR, SKIN + NAILS [Concomitant]
     Active Substance: MINERALS\VITAMINS

REACTIONS (5)
  - Product quality issue [None]
  - Sleep-related eating disorder [None]
  - Poor quality sleep [None]
  - Dyspepsia [None]
  - Fatigue [None]

NARRATIVE: CASE EVENT DATE: 20200505
